FAERS Safety Report 8380375-1 (Version None)
Quarter: 2012Q2

REPORT INFORMATION
  Report Type: 
  Country: None (occurrence: None)
  Receive Date: 20120523
  Receipt Date: 20120514
  Transmission Date: 20120825
  Serious: No
  Sender: FDA-Public Use
  Company Number: US-ASTRAZENECA-2011SE62684

PATIENT
  Age: 82 Year
  Sex: Female

DRUGS (4)
  1. CALCIUM CARBONATE [Concomitant]
  2. MEVACOR [Concomitant]
  3. NEXIUM [Suspect]
     Route: 048
  4. SYNTHROID [Concomitant]

REACTIONS (3)
  - DRUG EFFECT DECREASED [None]
  - DYSPEPSIA [None]
  - INTENTIONAL DRUG MISUSE [None]
